FAERS Safety Report 20749247 (Version 4)
Quarter: 2022Q2

REPORT INFORMATION
  Report Type: Spontaneous
  Country: US (occurrence: US)
  Receive Date: 20220426
  Receipt Date: 20220623
  Transmission Date: 20220721
  Serious: Yes (Other)
  Sender: FDA-Public Use
  Company Number: US-UNITED THERAPEUTICS-UNT-2022-008561

PATIENT
  Age: 11 Year
  Sex: Female

DRUGS (2)
  1. REMODULIN [Suspect]
     Active Substance: TREPROSTINIL
     Indication: Pulmonary arterial hypertension
     Dosage: UNK UNK, CONTINUING
     Route: 058
     Dates: start: 20220124
  2. REMODULIN [Suspect]
     Active Substance: TREPROSTINIL
     Dosage: 0.148 ?G/KG, CONTINUING
     Route: 058
     Dates: start: 2022

REACTIONS (7)
  - Brain injury [Unknown]
  - Complication associated with device [Unknown]
  - Device dislocation [Recovered/Resolved]
  - Sensitive skin [Unknown]
  - Device leakage [Unknown]
  - Product communication issue [Unknown]
  - Skin disorder [Unknown]

NARRATIVE: CASE EVENT DATE: 20220417
